FAERS Safety Report 9480791 (Version 1)
Quarter: 2013Q3

REPORT INFORMATION
  Report Type: Spontaneous
  Country: US (occurrence: US)
  Receive Date: 20130828
  Receipt Date: 20130828
  Transmission Date: 20140515
  Serious: Yes (Hospitalization, Other)
  Sender: FDA-Public Use
  Company Number: US-AMGEN-KDL119103

PATIENT
  Age: 68 Year
  Sex: Male

DRUGS (6)
  1. ENBREL [Suspect]
     Indication: PSORIASIS
     Dosage: 50 MG, QWK
     Route: 058
     Dates: start: 20040923
  2. SIMVASTATIN [Concomitant]
     Dosage: 20 MG, UNK
  3. NADOLOL [Concomitant]
     Dosage: 20 MG, UNK
  4. DOXAZOSIN MESILATE [Concomitant]
  5. ACETYLSALICYLIC ACID [Concomitant]
  6. MULTIVITAMINS [Concomitant]

REACTIONS (1)
  - Herpes zoster [Recovering/Resolving]
